FAERS Safety Report 9734993 (Version 38)
Quarter: 2017Q1

REPORT INFORMATION
  Report Type: Report from Study
  Country: CA (occurrence: CA)
  Receive Date: 20131206
  Receipt Date: 20170119
  Transmission Date: 20170429
  Serious: Yes (Hospitalization, Other)
  Sender: FDA-Public Use
  Company Number: CA-ROCHE-1275124

PATIENT
  Age: 67 Year
  Sex: Female
  Weight: 51 kg

DRUGS (12)
  1. PREDNISONE. [Concomitant]
     Active Substance: PREDNISONE
  2. DIOVAN [Concomitant]
     Active Substance: VALSARTAN
  3. METHYLPREDNISOLONE. [Concomitant]
     Active Substance: METHYLPREDNISOLONE
     Indication: PREMEDICATION
     Route: 042
     Dates: start: 20110726, end: 20110809
  4. ACETAMINOPHEN. [Concomitant]
     Active Substance: ACETAMINOPHEN
     Indication: PREMEDICATION
     Route: 048
     Dates: start: 20110726, end: 20110809
  5. DIPHENHYDRAMINE HCL [Concomitant]
     Active Substance: DIPHENHYDRAMINE HYDROCHLORIDE
     Indication: PREMEDICATION
     Route: 048
     Dates: start: 20110726, end: 20110809
  6. ACTEMRA [Suspect]
     Active Substance: TOCILIZUMAB
     Route: 042
     Dates: start: 20140605
  7. PLAQUENIL [Concomitant]
     Active Substance: HYDROXYCHLOROQUINE SULFATE
  8. FLORINEF ACETATE [Concomitant]
     Active Substance: FLUDROCORTISONE ACETATE
  9. FOSAMAX [Concomitant]
     Active Substance: ALENDRONATE SODIUM
  10. ACTEMRA [Suspect]
     Active Substance: TOCILIZUMAB
     Indication: RHEUMATOID ARTHRITIS
     Route: 042
     Dates: start: 20130320, end: 20140113
  11. RITUXAN [Suspect]
     Active Substance: RITUXIMAB
     Indication: RHEUMATOID ARTHRITIS
     Dosage: DAY 1 AND 15
     Route: 042
     Dates: start: 20110726, end: 20110809
  12. PARIET [Concomitant]
     Active Substance: RABEPRAZOLE SODIUM
     Indication: PROPHYLAXIS

REACTIONS (22)
  - Ill-defined disorder [Unknown]
  - Blood pressure increased [Unknown]
  - Urinary tract infection [Not Recovered/Not Resolved]
  - Dehydration [Unknown]
  - Nasopharyngitis [Unknown]
  - Blood pressure increased [Unknown]
  - Oxygen saturation decreased [Unknown]
  - Pelvic fracture [Unknown]
  - Gastroenteritis [Recovered/Resolved]
  - Upper respiratory tract infection [Recovered/Resolved]
  - Oxygen saturation decreased [Unknown]
  - Bone cyst [Unknown]
  - Dizziness [Recovering/Resolving]
  - Malaise [Unknown]
  - Blood pressure systolic increased [Unknown]
  - Infusion related reaction [Unknown]
  - Rheumatoid arthritis [Unknown]
  - Melanocytic naevus [Unknown]
  - Weight decreased [Unknown]
  - Herpes zoster [Unknown]
  - Spinal disorder [Unknown]
  - Defaecation urgency [Not Recovered/Not Resolved]

NARRATIVE: CASE EVENT DATE: 2013
